FAERS Safety Report 18250355 (Version 1)
Quarter: 2020Q3

REPORT INFORMATION
  Report Type: Other
  Country: FR (occurrence: FR)
  Receive Date: 20200909
  Receipt Date: 20200909
  Transmission Date: 20201103
  Serious: Yes (Life-Threatening, Hospitalization)
  Sender: FDA-Public Use
  Company Number: FR-NOSTRUM LABORATORIES, INC.-2089556

PATIENT
  Age: 30 Year
  Sex: Female

DRUGS (3)
  1. MORPHINE SULFATE. [Suspect]
     Active Substance: MORPHINE SULFATE
     Indication: PAIN
     Route: 041
  2. OXYCODONE. [Suspect]
     Active Substance: OXYCODONE HYDROCHLORIDE
     Route: 048
  3. NEFOPAM 120 MG CONTINUOUS IV [Suspect]
     Active Substance: NEFOPAM
     Route: 041

REACTIONS (7)
  - Intraventricular haemorrhage neonatal [Unknown]
  - Foetal megacystis [Recovered/Resolved]
  - Acute respiratory distress syndrome [Recovered/Resolved]
  - Acute kidney injury [Recovered/Resolved]
  - Urinary bladder rupture [Recovered/Resolved]
  - Urinary retention [Recovered/Resolved with Sequelae]
  - Pleural effusion [Recovered/Resolved]
